FAERS Safety Report 22015373 (Version 1)
Quarter: 2023Q1

REPORT INFORMATION
  Report Type: Spontaneous
  Country: US (occurrence: None)
  Receive Date: 20230216
  Receipt Date: 20230216
  Transmission Date: 20230418
  Serious: Yes (Hospitalization)
  Sender: FDA-Public Use
  Company Number: None

PATIENT
  Sex: Female

DRUGS (1)
  1. PROCRIT [Suspect]
     Active Substance: ERYTHROPOIETIN
     Dosage: 4000IU SUBCUTANEOUSLY ON MONDAY, WEDNESDAY AND FRIDAY?
     Route: 058
     Dates: start: 202301

REACTIONS (1)
  - Renal failure [None]
